FAERS Safety Report 4514733-X (Version None)
Quarter: 2004Q4

REPORT INFORMATION
  Report Type: 
  Country: None (occurrence: None)
  Receive Date: 20041124
  Receipt Date: 20041124
  Transmission Date: 20050328
  Serious: Yes (Disabling, Other)
  Sender: FDA-Public Use
  Company Number: None

PATIENT
  Age: 54 Year
  Sex: Female
  Weight: 81.6475 kg

DRUGS (2)
  1. CELEBREX [Suspect]
     Indication: JOINT INJURY
     Dosage: 1 A DAY
     Dates: start: 19990318, end: 20041116
  2. CELEBREX [Suspect]
     Indication: JOINT INJURY
     Dosage: 1 A DAY
     Dates: start: 19990426, end: 20041116

REACTIONS (8)
  - ANAEMIA [None]
  - DEPRESSION [None]
  - HAEMORRHAGE [None]
  - IMPAIRED WORK ABILITY [None]
  - LIVER DISORDER [None]
  - PAIN [None]
  - THROMBOCYTOPENIA [None]
  - ULCER [None]
